FAERS Safety Report 11521838 (Version 1)
Quarter: 2015Q3

REPORT INFORMATION
  Report Type: Spontaneous
  Country: US (occurrence: US)
  Receive Date: 20150918
  Receipt Date: 20150918
  Transmission Date: 20151125
  Serious: No
  Sender: FDA-Public Use
  Company Number: US-ROCHE-665206

PATIENT
  Age: 50 Year
  Sex: Female

DRUGS (7)
  1. CITALOPRAM [Concomitant]
     Active Substance: CITALOPRAM HYDROBROMIDE
     Route: 065
  2. LITHIUM. [Concomitant]
     Active Substance: LITHIUM
     Route: 065
  3. LITHIUM. [Concomitant]
     Active Substance: LITHIUM
     Dosage: SLOWLY INCREASED
     Route: 065
  4. RIBASPHERE RIBAPAK [Suspect]
     Active Substance: RIBAVIRIN
     Dosage: DOSAGE LOWERED
     Route: 048
  5. PEGASYS [Suspect]
     Active Substance: PEGINTERFERON ALFA-2A
     Indication: HEPATITIS C
     Dosage: FORM: PRE-FILLED SYRINGE
     Route: 058
  6. RIBASPHERE RIBAPAK [Suspect]
     Active Substance: RIBAVIRIN
     Indication: HEPATITIS C
     Dosage: DIVIDED DOSES; FORM: PILLS; 1 IN AM AND 1 IN PM;
     Route: 048
  7. RIBASPHERE RIBAPAK [Suspect]
     Active Substance: RIBAVIRIN
     Dosage: REDUCED DOSE
     Route: 048

REACTIONS (32)
  - Decreased appetite [Not Recovered/Not Resolved]
  - Asthenia [Not Recovered/Not Resolved]
  - Pain in extremity [Unknown]
  - Dry skin [Not Recovered/Not Resolved]
  - White blood cell count decreased [Unknown]
  - Nail growth abnormal [Unknown]
  - Anaemia [Unknown]
  - Hypersomnia [Not Recovered/Not Resolved]
  - Skin fissures [Not Recovered/Not Resolved]
  - Irritability [Not Recovered/Not Resolved]
  - Dysphonia [Not Recovered/Not Resolved]
  - Contusion [Unknown]
  - Depression [Not Recovered/Not Resolved]
  - Insomnia [Unknown]
  - Weight decreased [Unknown]
  - Onycholysis [Not Recovered/Not Resolved]
  - Eczema [Recovering/Resolving]
  - Peripheral swelling [Recovering/Resolving]
  - Inflammation [Unknown]
  - Dysgeusia [Not Recovered/Not Resolved]
  - Crying [Not Recovered/Not Resolved]
  - Exostosis of jaw [Unknown]
  - Skin ulcer [Unknown]
  - Haemoglobin decreased [Unknown]
  - Fatigue [Not Recovered/Not Resolved]
  - Body tinea [Unknown]
  - Nausea [Recovered/Resolved]
  - Myalgia [Recovered/Resolved]
  - Arthralgia [Not Recovered/Not Resolved]
  - Red blood cell count decreased [Unknown]
  - Malaise [Unknown]
  - Growth of eyelashes [Unknown]

NARRATIVE: CASE EVENT DATE: 2009
